FAERS Safety Report 23634426 (Version 2)
Quarter: 2024Q1

REPORT INFORMATION
  Report Type: Spontaneous
  Country: JP (occurrence: JP)
  Receive Date: 20240314
  Receipt Date: 20240322
  Transmission Date: 20240409
  Serious: Yes (Other)
  Sender: FDA-Public Use
  Company Number: JP-ABBVIE-5679593

PATIENT
  Age: 69 Year
  Sex: Female

DRUGS (11)
  1. LUMIGAN [Suspect]
     Active Substance: BIMATOPROST
     Indication: Glaucoma
     Route: 047
     Dates: start: 20240126
  2. BRIMONIDINE TARTRATE\TIMOLOL MALEATE [Suspect]
     Active Substance: BRIMONIDINE TARTRATE\TIMOLOL MALEATE
     Indication: Glaucoma
     Dosage: 2 DROP?BRIMONIDINE 2MG/ML;TIMOLOL 6.8MG/ML SOL
     Route: 047
     Dates: start: 20221222
  3. BRIMONIDINE TARTRATE\TIMOLOL MALEATE [Suspect]
     Active Substance: BRIMONIDINE TARTRATE\TIMOLOL MALEATE
     Dosage: 2 DROP?BRIMONIDINE 2MG/ML;TIMOLOL 6.8MG/ML SOL
     Route: 047
     Dates: start: 202005
  4. ALPHAGAN P [Suspect]
     Active Substance: BRIMONIDINE TARTRATE
     Indication: Glaucoma
     Dosage: 2 DROP
     Route: 047
     Dates: start: 20220508
  5. LEVOFLOXACIN [Concomitant]
     Active Substance: LEVOFLOXACIN
     Indication: Conjunctivitis
     Dosage: 5 DROP/DAY
     Route: 047
     Dates: start: 20200406
  6. RIPASUDIL HYDROCHLORIDE DIHYDRATE [Concomitant]
     Active Substance: RIPASUDIL HYDROCHLORIDE DIHYDRATE
     Indication: Product used for unknown indication
     Route: 047
  7. COSOPT [Concomitant]
     Active Substance: DORZOLAMIDE HYDROCHLORIDE\TIMOLOL MALEATE
     Indication: Product used for unknown indication
     Route: 047
     Dates: start: 20200508
  8. PILOCARPINE HYDROCHLORIDE [Concomitant]
     Active Substance: PILOCARPINE HYDROCHLORIDE
     Indication: Product used for unknown indication
     Dosage: OPHTHALMIC SOLUTION 2% 5 ML
     Route: 047
  9. Rinderon [Concomitant]
     Indication: Product used for unknown indication
     Route: 047
     Dates: start: 20200508
  10. DIAMOX SEQUELS [Concomitant]
     Active Substance: ACETAZOLAMIDE
     Indication: Glaucoma
     Route: 048
     Dates: start: 20240126
  11. DIAMOX SEQUELS [Concomitant]
     Active Substance: ACETAZOLAMIDE
     Indication: Glaucoma
     Route: 048

REACTIONS (2)
  - Corneal leukoma [Recovering/Resolving]
  - Corneal opacity [Recovering/Resolving]

NARRATIVE: CASE EVENT DATE: 20221213
